FAERS Safety Report 12580841 (Version 1)
Quarter: 2016Q3

REPORT INFORMATION
  Report Type: Spontaneous
  Country: US (occurrence: US)
  Receive Date: 20160721
  Receipt Date: 20160721
  Transmission Date: 20161109
  Serious: Yes (Other)
  Sender: FDA-Public Use
  Company Number: US-MYLANLABS-2016M1029896

PATIENT

DRUGS (8)
  1. INFLIXIMAB [Suspect]
     Active Substance: INFLIXIMAB
     Dosage: MAINTENANCE DOSE INCREASED TO 10 MG/KG EACH INFUSIO
     Route: 050
  2. METHYLPREDNISOLONE. [Concomitant]
     Active Substance: METHYLPREDNISOLONE
     Indication: COLITIS ULCERATIVE
     Route: 042
  3. AZATHIOPRINE. [Suspect]
     Active Substance: AZATHIOPRINE
     Indication: CHOLANGITIS SCLEROSING
     Route: 065
  4. URSODIOL. [Concomitant]
     Active Substance: URSODIOL
     Indication: CHOLANGITIS SCLEROSING
     Route: 065
  5. BUDESONIDE. [Concomitant]
     Active Substance: BUDESONIDE
     Indication: CHOLANGITIS SCLEROSING
     Dosage: 9 MG DAILY
     Route: 065
  6. INFLIXIMAB [Suspect]
     Active Substance: INFLIXIMAB
     Indication: COLITIS ULCERATIVE
     Dosage: 5 MG/KG/DOSE
     Route: 050
  7. BALSALAZIDE [Concomitant]
     Active Substance: BALSALAZIDE
     Route: 065
  8. INFLIXIMAB [Suspect]
     Active Substance: INFLIXIMAB
     Dosage: RE-INDUCTION PHASE 10 MG/KG PER DOSE INCREASED TO EVERY 4 WEEKS
     Route: 050

REACTIONS (6)
  - Pruritus [Unknown]
  - Fatigue [Unknown]
  - Dizziness [Unknown]
  - Lymphadenopathy [Unknown]
  - Autoimmune hepatitis [Recovered/Resolved]
  - Rash [Unknown]
